FAERS Safety Report 4549900-2 (Version None)
Quarter: 2004Q4

REPORT INFORMATION
  Report Type: 
  Country: None (occurrence: None)
  Receive Date: 20041228
  Receipt Date: 20040916
  Transmission Date: 20050328
  Serious: No
  Sender: FDA-Public Use
  Company Number: WAES 0409USA01461

PATIENT
  Age: 72 Year
  Sex: Female

DRUGS (1)
  1. INVANZ [Suspect]
     Indication: LEG AMPUTATION

REACTIONS (2)
  - BELLIGERENCE [None]
  - DELUSION [None]
